FAERS Safety Report 17435752 (Version 1)
Quarter: 2020Q1

REPORT INFORMATION
  Report Type: Spontaneous
  Country: NL (occurrence: NL)
  Receive Date: 20200219
  Receipt Date: 20200219
  Transmission Date: 20200409
  Serious: Yes (Other)
  Sender: FDA-Public Use
  Company Number: NL-SA-2020SA038321

PATIENT
  Sex: Male

DRUGS (10)
  1. QUINAPRIL HYDROCHLORIDE. [Suspect]
     Active Substance: QUINAPRIL HYDROCHLORIDE
     Indication: RENAL FAILURE
  2. ALLOPURINOL. [Concomitant]
     Active Substance: ALLOPURINOL
  3. QUINAPRIL HYDROCHLORIDE. [Suspect]
     Active Substance: QUINAPRIL HYDROCHLORIDE
     Indication: HYPERTENSION
     Dosage: 20 MG, BID
     Route: 065
     Dates: start: 2000, end: 20190510
  4. COLCHICINE. [Concomitant]
     Active Substance: COLCHICINE
  5. COLECALCIFEROL [Concomitant]
     Active Substance: CHOLECALCIFEROL
  6. COAPROVEL [Suspect]
     Active Substance: HYDROCHLOROTHIAZIDE\IRBESARTAN
     Indication: PRODUCT USED FOR UNKNOWN INDICATION
     Route: 065
  7. DURATEARS FREE [Concomitant]
  8. EZETIMIBE. [Concomitant]
     Active Substance: EZETIMIBE
  9. DIHYDRAL [Concomitant]
  10. CYRESS [Concomitant]
     Active Substance: BARNIDIPINE HYDROCHLORIDE

REACTIONS (4)
  - Erectile dysfunction [Not Recovered/Not Resolved]
  - Muscle spasms [Recovered/Resolved]
  - Penis disorder [Recovering/Resolving]
  - Skin discolouration [Recovering/Resolving]
